FAERS Safety Report 6028826-1 (Version None)
Quarter: 2009Q1

REPORT INFORMATION
  Report Type: 
  Country: None (occurrence: None)
  Receive Date: 20090102
  Receipt Date: 20081216
  Transmission Date: 20090719
  Serious: Yes (Disabling)
  Sender: FDA-Public Use
  Company Number: 2008SP025564

PATIENT
  Age: 52 Year
  Sex: Male
  Weight: 76 kg

DRUGS (5)
  1. PEG-INTRON [Suspect]
     Indication: DRUG USE FOR UNKNOWN INDICATION
     Dosage: 80 MCG; QW; IV
     Route: 042
     Dates: start: 20070801, end: 20080831
  2. RIBAVIRIN [Suspect]
     Indication: DRUG USE FOR UNKNOWN INDICATION
     Dosage: 1 GM; QD; PO
     Route: 048
     Dates: start: 20070808, end: 20080831
  3. FLUORETINE [Concomitant]
  4. FOLIC ACID [Concomitant]
  5. VITAMIN B COMPLEX CAP [Concomitant]

REACTIONS (3)
  - RETINAL DETACHMENT [None]
  - RETINOPATHY [None]
  - VISUAL ACUITY REDUCED [None]
